FAERS Safety Report 9836868 (Version 4)
Quarter: 2014Q2

REPORT INFORMATION
  Report Type: Spontaneous
  Country: IT (occurrence: IT)
  Receive Date: 20140123
  Receipt Date: 20140407
  Transmission Date: 20141212
  Serious: Yes (Hospitalization)
  Sender: FDA-Public Use
  Company Number: IT-RANBAXY-2014RR-77367

PATIENT
  Age: 77 Year
  Sex: Female

DRUGS (3)
  1. CLARITHROMYCIN [Suspect]
     Indication: BRONCHOPNEUMONIA
     Dosage: 1 DF/DAY
     Route: 048
     Dates: start: 20131223, end: 20131226
  2. COUMADIN [Interacting]
     Indication: ATRIAL FIBRILLATION
     Dosage: 1 DF, PRN
     Route: 048
     Dates: start: 20100725, end: 20131226
  3. LEVOFLOXACIN [Interacting]
     Indication: BRONCHOPNEUMONIA
     Dosage: 500 MG/DAY
     Route: 048
     Dates: start: 20131213, end: 20131226

REACTIONS (2)
  - Drug interaction [Recovering/Resolving]
  - Hypocoagulable state [Recovering/Resolving]
